FAERS Safety Report 8265229-3 (Version None)
Quarter: 2012Q2

REPORT INFORMATION
  Report Type: 
  Country: None (occurrence: None)
  Receive Date: 20120406
  Receipt Date: 20120330
  Transmission Date: 20120825
  Serious: Yes (Hospitalization)
  Sender: FDA-Public Use
  Company Number: CZ-UCBSA-054427

PATIENT
  Age: 37 Year
  Sex: Female
  Weight: 58 kg

DRUGS (5)
  1. MESALASIME [Concomitant]
     Indication: CROHN'S DISEASE
     Dosage: 500 MG,3 TIMES
     Route: 048
     Dates: start: 20050505
  2. CERTOLIZUMAB PEGOL [Suspect]
     Indication: CROHN'S DISEASE
     Route: 058
     Dates: start: 20050505, end: 20120301
  3. ITOPRID [Concomitant]
     Indication: CROHN'S DISEASE
     Dosage: 50 MG, 1 TIME
     Route: 048
     Dates: start: 20080724
  4. OMEPRAZOLE [Concomitant]
     Indication: CROHN'S DISEASE
     Dosage: 20 MG, 1 TIME
     Route: 048
     Dates: start: 20120105
  5. SORBIFER [Concomitant]
     Indication: CROHN'S DISEASE
     Dosage: 320 MG , 1 TIME
     Route: 048
     Dates: start: 20050505

REACTIONS (1)
  - ABDOMINAL ABSCESS [None]
